FAERS Safety Report 8765584 (Version 1)
Quarter: 2012Q4

REPORT INFORMATION
  Report Type: 
  Country: BR (occurrence: BR)
  Receive Date: 20120828
  Receipt Date: 20120828
  Transmission Date: 20130627
  Serious: Yes (Hospitalization, Other)
  Sender: FDA-Public Use
  Company Number: PHHY2012BR073608

PATIENT
  Age: 79 Year
  Sex: Male

DRUGS (3)
  1. INDACATEROL [Suspect]
  2. VALSARTAN [Concomitant]
  3. MOMETASONE [Concomitant]

REACTIONS (6)
  - Cardiac failure [Unknown]
  - Dyspnoea exertional [Unknown]
  - Gastric ulcer helicobacter [Recovering/Resolving]
  - Gastrointestinal haemorrhage [Unknown]
  - Melaena [Unknown]
  - Haemoglobin decreased [Unknown]
